FAERS Safety Report 7198794-8 (Version None)
Quarter: 2010Q4

REPORT INFORMATION
  Report Type: 
  Country: None (occurrence: None)
  Receive Date: 20101227
  Receipt Date: 20101217
  Transmission Date: 20110411
  Serious: Yes (Other)
  Sender: FDA-Public Use
  Company Number: US-JNJCH-2010029246

PATIENT
  Age: 44 Year
  Sex: Female
  Weight: 86.2 kg

DRUGS (1)
  1. MULTI-SYMPTOM ROLAIDS PLUS ANTI-GAS SOFTCHEWS FRUIT [Suspect]
     Indication: FLATULENCE
     Dosage: TEXT:TWO TABLETS AS NEEDED
     Route: 048

REACTIONS (6)
  - ABDOMINAL DISCOMFORT [None]
  - GINGIVAL DISORDER [None]
  - HEADACHE [None]
  - PRODUCT QUALITY ISSUE [None]
  - SENSATION OF FOREIGN BODY [None]
  - TOOTH FRACTURE [None]
